FAERS Safety Report 4318419-6 (Version None)
Quarter: 2004Q1

REPORT INFORMATION
  Report Type: 
  Country: None (occurrence: None)
  Receive Date: 20040315
  Receipt Date: 20040301
  Transmission Date: 20041129
  Serious: Yes (Hospitalization)
  Sender: FDA-Public Use
  Company Number: 2003AP01997

PATIENT
  Age: 62 Year
  Sex: Female

DRUGS (2)
  1. PULMICORT [Suspect]
     Indication: ASTHMA
     Dosage: 400 UG DAILY IH
     Route: 055
     Dates: start: 20020101
  2. ALDECIN [Concomitant]

REACTIONS (1)
  - LOBAR PNEUMONIA [None]
